FAERS Safety Report 16915157 (Version 1)
Quarter: 2019Q4

REPORT INFORMATION
  Report Type: Spontaneous
  Country: CN (occurrence: CN)
  Receive Date: 20191014
  Receipt Date: 20191014
  Transmission Date: 20200122
  Serious: Yes (Other)
  Sender: FDA-Public Use
  Company Number: CN-PFIZER INC-2019439323

PATIENT
  Age: 3 Week
  Sex: Male
  Weight: 1.7 kg

DRUGS (2)
  1. GLUCOSE [Concomitant]
     Active Substance: DEXTROSE
     Indication: VEHICLE SOLUTION USE
     Dosage: 17 ML, 1X/DAY
     Route: 041
     Dates: start: 20190919, end: 20190919
  2. AZITHROMYCIN ANHYDROUS. [Suspect]
     Active Substance: AZITHROMYCIN ANHYDROUS
     Indication: MYCOPLASMA INFECTION
     Dosage: 0.017 G, 1X/DAY
     Route: 041
     Dates: start: 20190919, end: 20190919

REACTIONS (3)
  - Heart rate decreased [Recovering/Resolving]
  - Pallor [Recovering/Resolving]
  - Oxygen saturation decreased [Recovering/Resolving]

NARRATIVE: CASE EVENT DATE: 20190919
